FAERS Safety Report 4636112-7 (Version None)
Quarter: 2005Q2

REPORT INFORMATION
  Report Type: 
  Country: None (occurrence: None)
  Receive Date: 20050415
  Receipt Date: 20030115
  Transmission Date: 20051028
  Serious: Yes (Disabling)
  Sender: FDA-Public Use
  Company Number: AU-MERCK-0301AUS00080

PATIENT
  Age: 75 Year
  Sex: Male

DRUGS (4)
  1. ZOCOR [Suspect]
     Route: 065
     Dates: start: 19990101, end: 20020101
  2. SULFAMETHOXAZOLE AND TRIMETHOPRIM [Concomitant]
     Route: 065
  3. CYCLOPHOSPHAMIDE [Concomitant]
     Route: 065
  4. PREDNISOLONE [Concomitant]
     Route: 065

REACTIONS (5)
  - DEPRESSION [None]
  - DIZZINESS [None]
  - INSOMNIA [None]
  - PARAESTHESIA [None]
  - VISION BLURRED [None]
